FAERS Safety Report 6571619-7 (Version None)
Quarter: 2010Q1

REPORT INFORMATION
  Report Type: 
  Country: None (occurrence: None)
  Receive Date: 20100205
  Receipt Date: 20100128
  Transmission Date: 20100710
  Serious: Yes (Hospitalization)
  Sender: FDA-Public Use
  Company Number: US-ELI_LILLY_AND_COMPANY-US201002000091

PATIENT
  Age: 89 Year
  Sex: Female

DRUGS (3)
  1. HUMULIN R [Suspect]
     Indication: DIABETES MELLITUS
     Dosage: UNK, AS NEEDED
     Dates: start: 19900101
  2. HUMULIN R [Suspect]
     Dosage: UNK, AS NEEDED
     Dates: start: 19900101
  3. LANTUS [Concomitant]

REACTIONS (6)
  - BLOOD CALCIUM DECREASED [None]
  - BLOOD PRESSURE DECREASED [None]
  - EXPIRED DRUG ADMINISTERED [None]
  - FEELING JITTERY [None]
  - HOSPITALISATION [None]
  - INCORRECT PRODUCT STORAGE [None]
